FAERS Safety Report 8458714-2 (Version None)
Quarter: 2012Q2

REPORT INFORMATION
  Report Type: 
  Country: None (occurrence: None)
  Receive Date: 20120622
  Receipt Date: 20120614
  Transmission Date: 20120825
  Serious: Yes (Hospitalization, Other)
  Sender: FDA-Public Use
  Company Number: US-BAYER-2011-108091

PATIENT
  Age: 40 Year
  Sex: Female
  Weight: 75 kg

DRUGS (24)
  1. YASMIN [Suspect]
     Indication: CONTRACEPTION
     Dosage: UNK
     Route: 048
     Dates: start: 20061201, end: 20070401
  2. TYLENOL ARTHRITIS [Concomitant]
     Dosage: 650 MG, UNK
     Route: 048
  3. VERAPAMIL [Concomitant]
     Dosage: 120 MG,DAILY
     Dates: start: 20070401
  4. NEURONTIN [Concomitant]
  5. PROTONIX [Concomitant]
     Dosage: 40 MG, DAILY
     Dates: start: 20070401
  6. SENNA-MINT WAF [Concomitant]
     Dosage: ONE TO TWO TABLETS DAILY AS NEEDED
     Dates: start: 20070401
  7. RELACORE [Concomitant]
  8. INDERAL [Concomitant]
     Dosage: 40 MG, MORNING AND EVENING
  9. KETOROLAC TROMETHAMINE [Concomitant]
  10. MOTRIN [Concomitant]
  11. PROPRANOLOL [Concomitant]
  12. CALCIUM CHANNEL BLOCKERS [Concomitant]
     Dosage: UNK
     Dates: start: 20070401
  13. YASMIN [Suspect]
     Indication: OVARIAN CYST
  14. ASPIRIN [Concomitant]
     Dosage: UNK UNK, QD
     Dates: start: 20070401
  15. IBUPROFEN [Concomitant]
     Dosage: 600 MG, TID AS NEEDED
     Dates: start: 20070401
  16. PERCOCET [Concomitant]
     Dosage: ONE TO TWO TABLETS EVERY 4 HOURS AS NEEDED
     Dates: start: 20070401
  17. HOODIA [Concomitant]
  18. IBUPROFEN (ADVIL) [Concomitant]
     Dosage: TWO TABLETS TWICE DAILY AS NEEDED
  19. KLONOPIN [Concomitant]
  20. XANAX [Concomitant]
     Dosage: 0.25 MG ONE TO TWO TABLETS TWICE DAILY
     Route: 048
  21. PREDNISONE TAB [Concomitant]
     Dosage: 40 MG, DAILY
     Dates: start: 20070401
  22. PRILOSEC [Concomitant]
  23. MORPHINE [Concomitant]
  24. DOSS [Concomitant]
     Dosage: 250 MG, BID
     Dates: start: 20070401

REACTIONS (7)
  - DEPRESSION [None]
  - CEREBROVASCULAR ACCIDENT [None]
  - DEEP VEIN THROMBOSIS [None]
  - ANXIETY [None]
  - PULMONARY EMBOLISM [None]
  - VASOCONSTRICTION [None]
  - PAIN [None]
